FAERS Safety Report 5409436-3 (Version None)
Quarter: 2007Q3

REPORT INFORMATION
  Report Type: 
  Country: None (occurrence: None)
  Receive Date: 20070807
  Receipt Date: 20070807
  Transmission Date: 20080115
  Serious: No
  Sender: FDA-Public Use
  Company Number: None

PATIENT
  Age: 42 Year
  Sex: Male
  Weight: 88.4514 kg

DRUGS (1)
  1. CLINDAMYCIN HCL [Suspect]
     Indication: GINGIVAL ABSCESS
     Dosage: 1 300MG CAPSUL 3 TIMES DAILY PO
     Route: 048
     Dates: start: 20070726, end: 20070729

REACTIONS (2)
  - DIARRHOEA [None]
  - MUSCLE SPASMS [None]
